FAERS Safety Report 8608070 (Version 4)
Quarter: 2014Q2

REPORT INFORMATION
  Report Type: Spontaneous
  Country: US (occurrence: US)
  Receive Date: 20120611
  Receipt Date: 20140402
  Transmission Date: 20141212
  Serious: Yes (Disabling)
  Sender: FDA-Public Use
  Company Number: US-ASTRAZENECA-2012SE35500

PATIENT
  Age: 38 Year
  Sex: Female

DRUGS (22)
  1. NEXIUM [Suspect]
     Indication: GASTROOESOPHAGEAL REFLUX DISEASE
     Dosage: TWO TIMES A DAY
     Route: 048
     Dates: start: 2003
  2. NEXIUM [Suspect]
     Indication: GASTROOESOPHAGEAL REFLUX DISEASE
     Route: 048
     Dates: start: 20080516
  3. PREVACID [Concomitant]
  4. RANITIDINE [Concomitant]
  5. AMLODIPINE [Concomitant]
  6. METFORMIN [Concomitant]
  7. LORATADINE [Concomitant]
  8. LORTABS [Concomitant]
  9. FUROSEMIDE [Concomitant]
     Dates: start: 20080910
  10. LEVAQUIN [Concomitant]
     Dates: start: 20080925
  11. PROMETHAZINE [Concomitant]
     Dates: start: 20090504
  12. CARVEDILOL [Concomitant]
     Dates: start: 20100730
  13. METAXALONE [Concomitant]
     Dates: start: 20110202
  14. PREDNISONE [Concomitant]
     Dates: start: 20120207
  15. TRAMADOL HCL [Concomitant]
     Dates: start: 20110119
  16. CITALOPRAM HBR [Concomitant]
     Dates: start: 20110819
  17. METOCLOPRAMIDE [Concomitant]
     Dates: start: 20110929
  18. CYCLOBENZAPRINE [Concomitant]
     Dates: start: 20080628
  19. SINGULAIR [Concomitant]
     Dates: start: 20110329
  20. BENAZEPRIL HCL [Concomitant]
     Dates: start: 20110606
  21. AMLODIPINE BESYLATE [Concomitant]
     Dates: start: 20120718
  22. FLUCONAZOLE [Concomitant]
     Dates: start: 20121031

REACTIONS (12)
  - Cardiac disorder [Unknown]
  - Osteoporosis [Unknown]
  - Radius fracture [Unknown]
  - Upper limb fracture [Unknown]
  - Ankle fracture [Unknown]
  - Meniscus injury [Unknown]
  - Arthritis [Unknown]
  - Diabetes mellitus [Unknown]
  - Fall [Unknown]
  - Lower limb fracture [Unknown]
  - Contusion [Unknown]
  - Depression [Unknown]
